FAERS Safety Report 5575167-2 (Version None)
Quarter: 2007Q4

REPORT INFORMATION
  Report Type: 
  Country: None (occurrence: None)
  Receive Date: 20071227
  Receipt Date: 20071218
  Transmission Date: 20080405
  Serious: Yes (Other)
  Sender: FDA-Public Use
  Company Number: DE-PFIZER INC-2007106893

PATIENT
  Sex: Female

DRUGS (4)
  1. CAMPTO [Suspect]
  2. CETUXIMAB [Concomitant]
  3. DEXAMETHASONE TAB [Concomitant]
  4. ATROPIN [Concomitant]

REACTIONS (5)
  - APHONIA [None]
  - COUGH [None]
  - DYSPNOEA [None]
  - INTERSTITIAL LUNG DISEASE [None]
  - SKIN REACTION [None]
